FAERS Safety Report 7132163-1 (Version None)
Quarter: 2010Q4

REPORT INFORMATION
  Report Type: 
  Country: None (occurrence: None)
  Receive Date: 20101129
  Receipt Date: 20101129
  Transmission Date: 20110411
  Serious: No
  Sender: FDA-Public Use
  Company Number: None

PATIENT
  Sex: Female
  Weight: 72.5755 kg

DRUGS (1)
  1. LYRICA [Suspect]
     Indication: MUSCULOSKELETAL DISORDER
     Dosage: 1 - 3 X DAY
     Dates: start: 20100530, end: 20100630

REACTIONS (1)
  - AMNESIA [None]
